FAERS Safety Report 9254872 (Version 1)
Quarter: 2013Q1

REPORT INFORMATION
  Report Type: Spontaneous
  Country: US (occurrence: None)
  Receive Date: 20121212
  Receipt Date: 20121212
  Transmission Date: 20140127
  Serious: No
  Sender: FDA-Public Use
  Company Number: 1209USA012017

PATIENT
  Age: 51 Year
  Sex: Male

DRUGS (3)
  1. PEGINTRON [Suspect]
     Indication: HEPATITIS C
     Dates: start: 20120409
  2. REBETOL (RIBAVIRIN) [Suspect]
     Dates: start: 20120409
  3. VICTRELIS [Suspect]
     Dates: start: 20120507

REACTIONS (2)
  - Somnolence [None]
  - Back pain [None]
